FAERS Safety Report 7874194 (Version 4)
Quarter: 2013Q1

REPORT INFORMATION
  Report Type: Report from Study
  Country: BE (occurrence: BE)
  Receive Date: 20110328
  Receipt Date: 20130319
  Transmission Date: 20140127
  Serious: Yes (Death, Hospitalization)
  Sender: FDA-Public Use
  Company Number: BE-ELI_LILLY_AND_COMPANY-BE201012005854

PATIENT
  Age: 65 Year
  Sex: Male

DRUGS (13)
  1. PEMETREXED [Suspect]
     Indication: NON-SMALL CELL LUNG CANCER STAGE III
     Dosage: 500 MG/M2, D1, D22 AND D43
     Route: 042
     Dates: start: 20101004, end: 20101115
  2. CISPLATIN [Suspect]
     Indication: NON-SMALL CELL LUNG CANCER STAGE III
     Dosage: 75 MG/M2, D1, D22 AND D43
     Route: 042
     Dates: start: 20101004, end: 20101115
  3. RADIATION [Suspect]
     Indication: NON-SMALL CELL LUNG CANCER STAGE III
     Dosage: 2 GY, DAILY (1/D)
     Dates: start: 20101004, end: 20101118
  4. PEMETREXED [Suspect]
     Indication: NON-SMALL CELL LUNG CANCER STAGE III
     Dosage: 500 MG/M2,  D1, 22, 43, 64
     Route: 042
     Dates: start: 20101215
  5. FOLIC ACID [Concomitant]
     Indication: PROPHYLAXIS
     Dates: start: 20100927
  6. VITAMIN B12 [Concomitant]
     Indication: PROPHYLAXIS
     Dates: start: 20100927
  7. DEXAMETHASONE [Concomitant]
     Indication: PROPHYLAXIS
     Dates: start: 20101003
  8. PANTOPRAZOL [Concomitant]
     Indication: PROPHYLAXIS
  9. THEBACON [Concomitant]
     Indication: COUGH
     Dates: start: 20101222
  10. NAPROXEN [Concomitant]
  11. METHYLPREDNISOLONE [Concomitant]
     Indication: DYSPNOEA
  12. ENOXAPARIN [Concomitant]
     Indication: THROMBOSIS
     Dates: start: 20101215
  13. SIMVASTATIN [Concomitant]
     Indication: HYPERCHOLESTEROLAEMIA
     Dosage: UNK, UNK
     Dates: start: 2008

REACTIONS (2)
  - Pulmonary haemorrhage [Fatal]
  - Pneumonia [Not Recovered/Not Resolved]
